FAERS Safety Report 5511651-5 (Version None)
Quarter: 2007Q4

REPORT INFORMATION
  Report Type: 
  Country: None (occurrence: None)
  Receive Date: 20071109
  Receipt Date: 20071026
  Transmission Date: 20080405
  Serious: Yes (Death, Other)
  Sender: FDA-Public Use
  Company Number: GB-RANBAXY-2007RR-11103

PATIENT

DRUGS (1)
  1. TERBINAFINE HCL [Suspect]
     Indication: ONYCHOMYCOSIS
     Route: 048

REACTIONS (4)
  - ARTHRITIS [None]
  - LEUKOPENIA [None]
  - MYOCARDIAL INFARCTION [None]
  - SYSTEMIC LUPUS ERYTHEMATOSUS [None]
